FAERS Safety Report 15532576 (Version 1)
Quarter: 2018Q4

REPORT INFORMATION
  Report Type: Spontaneous
  Country: ES (occurrence: ES)
  Receive Date: 20181019
  Receipt Date: 20181019
  Transmission Date: 20190205
  Serious: Yes (Life-Threatening, Hospitalization, Other)
  Sender: FDA-Public Use
  Company Number: ES-GLAXOSMITHKLINE-ES2018182816

PATIENT
  Age: 53 Year
  Sex: Female

DRUGS (6)
  1. FORTECORTIN [Suspect]
     Active Substance: DEXAMETHASONE
     Indication: BACK PAIN
     Dosage: UNK UNK, QD
     Route: 048
     Dates: start: 20180731, end: 20180823
  2. PARACETAMOL [Concomitant]
     Active Substance: ACETAMINOPHEN
     Indication: BACK PAIN
     Dosage: 2275 MG, QD
     Route: 048
     Dates: start: 20180813, end: 20180829
  3. OMEPRAZOL [Concomitant]
     Active Substance: OMEPRAZOLE
     Indication: PROPHYLAXIS
     Dosage: 20 MG, QD
     Route: 048
     Dates: start: 20180731, end: 20180823
  4. DICLOFENAC SODIUM. [Suspect]
     Active Substance: DICLOFENAC SODIUM
     Indication: BACK PAIN
     Dosage: 50.53 MG, 84 HOUR
     Route: 048
     Dates: start: 20180725, end: 20180731
  5. ENANTYUM [Interacting]
     Active Substance: DEXKETOPROFEN TROMETAMOL
     Indication: BACK PAIN
     Dosage: 25 MG, Q12H
     Route: 048
     Dates: start: 20180731, end: 20180813
  6. TRAMADOL HYDROCHLORIDE. [Concomitant]
     Active Substance: TRAMADOL HYDROCHLORIDE
     Indication: BACK PAIN
     Dosage: 237.5 MG, QD
     Route: 048
     Dates: start: 20180813, end: 20180826

REACTIONS (1)
  - Peptic ulcer perforation [Not Recovered/Not Resolved]

NARRATIVE: CASE EVENT DATE: 20180823
